FAERS Safety Report 13463743 (Version 1)
Quarter: 2017Q2

REPORT INFORMATION
  Report Type: Spontaneous
  Country: US (occurrence: US)
  Receive Date: 20170420
  Receipt Date: 20170420
  Transmission Date: 20170830
  Serious: Yes (Other)
  Sender: FDA-Public Use
  Company Number: US-ROCHE-687122

PATIENT
  Age: 27 Year
  Sex: Male
  Weight: 59.9 kg

DRUGS (2)
  1. ACCUTANE [Suspect]
     Active Substance: ISOTRETINOIN
     Indication: ACNE
     Route: 048
  2. ACCUTANE [Suspect]
     Active Substance: ISOTRETINOIN
     Dosage: TOOK HIGHER DOSE THAN RECOMMENDED FOR 4.5 MONTHS.
     Route: 048

REACTIONS (3)
  - Arthritis [Unknown]
  - Intracranial pressure increased [Unknown]
  - Gastrointestinal disorder [Unknown]

NARRATIVE: CASE EVENT DATE: 200912
